FAERS Safety Report 8936427 (Version 1)
Quarter: 2012Q4

REPORT INFORMATION
  Report Type: 
  Country: US (occurrence: US)
  Receive Date: 20121130
  Receipt Date: 20121130
  Transmission Date: 20130627
  Serious: Yes (Other)
  Sender: FDA-Public Use
  Company Number: US-BAYER-2012-123330

PATIENT
  Age: 52 Year
  Sex: Male
  Weight: 47.62 kg

DRUGS (9)
  1. NEXAVAR [Suspect]
     Indication: LIVER, CANCER OF
     Dosage: 400 mg, BID
     Route: 048
  2. HYDROMORPHONE [Concomitant]
     Dosage: 2 mg, UNK
     Route: 048
  3. COUMADIN [Concomitant]
     Dosage: 10 mg, UNK
     Route: 048
  4. LAXATIVES [Concomitant]
     Dosage: 15 mg, UNK
     Route: 048
  5. ZOFRAN [Concomitant]
     Dosage: 4 mg, UNK
     Route: 048
  6. PREVACID [Concomitant]
     Dosage: 15 mg, UNK
     Route: 048
  7. FENTANYL [Concomitant]
     Dosage: 12MCG/HR
  8. WARFARIN [Concomitant]
     Dosage: 10 mg, UNK
     Route: 048
  9. SENNA [Concomitant]
     Dosage: 8.6 mg, UNK
     Route: 048

REACTIONS (6)
  - Diarrhoea [Unknown]
  - Constipation [Unknown]
  - Abdominal pain [Unknown]
  - Dry skin [Unknown]
  - Liver function test abnormal [Unknown]
  - Anticoagulation drug level above therapeutic [Unknown]
